FAERS Safety Report 21456014 (Version 1)
Quarter: 2022Q4

REPORT INFORMATION
  Report Type: Spontaneous
  Country: US (occurrence: None)
  Receive Date: 20221013
  Receipt Date: 20221013
  Transmission Date: 20230112
  Serious: No
  Sender: FDA-Public Use
  Company Number: None

PATIENT
  Age: 22 Year

DRUGS (1)
  1. TUBERSOL [Suspect]
     Active Substance: TUBERCULIN PURIFIED PROTEIN DERIVATIVE
     Route: 023

REACTIONS (3)
  - Manufacturing product storage issue [None]
  - Product quality issue [None]
  - Suspected product quality issue [None]

NARRATIVE: CASE EVENT DATE: 20220901
